FAERS Safety Report 7045722-1 (Version None)
Quarter: 2010Q4

REPORT INFORMATION
  Report Type: 
  Country: None (occurrence: None)
  Receive Date: 20101014
  Receipt Date: 20101005
  Transmission Date: 20110411
  Serious: Yes (Other)
  Sender: FDA-Public Use
  Company Number: ES-GENZYME-THYM-1001886

PATIENT
  Age: 46 Year
  Sex: Male

DRUGS (4)
  1. THYMOGLOBULIN [Suspect]
     Indication: RENAL TRANSPLANT
     Dosage: UNK
     Dates: start: 20070101
  2. TACROLIMUS [Concomitant]
     Indication: IMMUNOSUPPRESSION
  3. MYCOPHENOLATE MOFETIL [Concomitant]
     Indication: IMMUNOSUPPRESSION
     Dosage: UNK
  4. PREDNISONE [Concomitant]
     Indication: IMMUNOSUPPRESSION
     Dosage: UNK

REACTIONS (3)
  - COMPLICATIONS OF TRANSPLANTED KIDNEY [None]
  - JARISCH-HERXHEIMER REACTION [None]
  - SECONDARY SYPHILIS [None]
